FAERS Safety Report 9664929 (Version 3)
Quarter: 2013Q4

REPORT INFORMATION
  Report Type: Spontaneous
  Country: DE (occurrence: SE)
  Receive Date: 20131101
  Receipt Date: 20131126
  Transmission Date: 20140711
  Serious: Yes (Hospitalization)
  Sender: FDA-Public Use
  Company Number: SE-FRI-1000050748

PATIENT
  Age: 90 Year
  Sex: Female
  Weight: 71 kg

DRUGS (12)
  1. MEMANTINE [Suspect]
     Indication: DEMENTIA
     Dosage: 20 MG
     Route: 048
     Dates: start: 20130514, end: 20131013
  2. MEMANTINE [Suspect]
     Dosage: 10 MG
     Route: 048
     Dates: start: 20131014, end: 20131020
  3. NORSPAN DEPOT [Concomitant]
     Dosage: 15 MCG WEEKLY
  4. MIRTAZAPINE [Concomitant]
     Indication: DEPRESSION
     Dosage: 15 MG
     Route: 048
     Dates: start: 20130903, end: 20131009
  5. MINDIAB [Concomitant]
     Indication: DIABETES MELLITUS
     Dosage: 2.5 MG
     Route: 048
     Dates: start: 20130514
  6. IMDUR [Concomitant]
     Indication: CARDIAC DISORDER
     Dosage: 120 MG
  7. BISOPROLOL [Concomitant]
     Indication: CARDIAC DISORDER
     Dosage: 5 MG
  8. LOSARTAN [Concomitant]
     Indication: CARDIAC DISORDER
     Dosage: 100 MG
  9. LASIX RETARD [Concomitant]
     Indication: CARDIAC DISORDER
     Dosage: 60 MG
  10. ALVEDON [Concomitant]
     Indication: PAIN
     Dosage: 4 G
  11. GLYTRIN [Concomitant]
     Route: 060
  12. OXASCAND [Concomitant]

REACTIONS (3)
  - Deep vein thrombosis [Recovering/Resolving]
  - Weight increased [Not Recovered/Not Resolved]
  - Increased appetite [Unknown]
